FAERS Safety Report 8360186-3 (Version None)
Quarter: 2012Q2

REPORT INFORMATION
  Report Type: 
  Country: None (occurrence: None)
  Receive Date: 20120515
  Receipt Date: 20120503
  Transmission Date: 20120825
  Serious: Yes (Other)
  Sender: FDA-Public Use
  Company Number: CN-JNJFOC-20120506678

PATIENT
  Age: 26 Year
  Sex: Male

DRUGS (2)
  1. RISPERDAL [Suspect]
     Indication: SCHIZOPHRENIA
     Route: 048
     Dates: start: 20120201, end: 20120201
  2. RISPERDAL [Suspect]
     Route: 048
     Dates: start: 20100901, end: 20100901

REACTIONS (4)
  - TOXICITY TO VARIOUS AGENTS [None]
  - MOVEMENT DISORDER [None]
  - APHASIA [None]
  - BLISTER [None]
